FAERS Safety Report 15576743 (Version 1)
Quarter: 2018Q4

REPORT INFORMATION
  Report Type: Other
  Country: CN (occurrence: CN)
  Receive Date: 20181101
  Receipt Date: 20181101
  Transmission Date: 20190205
  Serious: Yes (Life-Threatening, Other)
  Sender: FDA-Public Use
  Company Number: CN-GEHC-2018CSU004460

PATIENT

DRUGS (1)
  1. OMNIPAQUE [Suspect]
     Active Substance: IOHEXOL
     Indication: BRANCHIAL CYST
     Dosage: 65 ML, SINGLE
     Route: 042
     Dates: start: 20180824, end: 20180824

REACTIONS (5)
  - Dysphonia [Recovering/Resolving]
  - Rash [Recovering/Resolving]
  - Mouth swelling [Recovering/Resolving]
  - Blood pressure increased [Recovering/Resolving]
  - Heart rate increased [Recovering/Resolving]

NARRATIVE: CASE EVENT DATE: 20180824
